FAERS Safety Report 10697400 (Version 1)
Quarter: 2015Q1

REPORT INFORMATION
  Report Type: Spontaneous
  Country: NL (occurrence: NL)
  Receive Date: 20150108
  Receipt Date: 20150108
  Transmission Date: 20150721
  Serious: Yes (Other)
  Sender: FDA-Public Use
  Company Number: NL-TEVA-533179ISR

PATIENT
  Age: 58 Year
  Sex: Male

DRUGS (10)
  1. THIAMINE TABLET 25MG [Suspect]
     Active Substance: THIAMINE
     Dosage: 100 MILLIGRAM DAILY;
  2. ASCORBINEZUUR TABLET 250MG [Suspect]
     Active Substance: ASCORBIC ACID
     Dosage: 500 MILLIGRAM DAILY;
  3. BISOPROLOL TABLET 2.5MG [Suspect]
     Active Substance: BISOPROLOL
     Dosage: 2.5 MILLIGRAM DAILY;
  4. METOCLOPRAMIDE TABLET 10MG [Suspect]
     Active Substance: METOCLOPRAMIDE
     Dosage: 3 TIMES PER DAY AS NECESSARY
  5. SPIRONOLACTON TABLET 25MG [Suspect]
     Active Substance: SPIRONOLACTONE
     Dosage: 25 MILLIGRAM DAILY;
  6. PARACETAMOL TABLET 500MG [Suspect]
     Active Substance: ACETAMINOPHEN
     Dosage: 4 TIMES PER DAY AS NECESSARY
     Route: 065
  7. MELATONINE TABLET 5MG [Suspect]
     Active Substance: MELATONIN
     Dosage: 5 MILLIGRAM DAILY;
  8. FENPROCOUMON TABLET 3MG [Suspect]
     Active Substance: PHENPROCOUMON
     Dosage: ACCORDING TO SPECIFICATIONS THROMBOSIS
  9. VITAMIN B COMPLEX [Suspect]
     Active Substance: CYANOCOBALAMIN\DEXPANTHENOL\NIACINAMIDE\PYRIDOXINE HYDROCHLORIDE\RIBOFLAVIN 5^-PHOSPHATE SODIUM\THIAMINE HYDROCHLORIDE\VITAMIN B COMPLEX
     Dosage: 1 DOSAGE FORMS DAILY;
  10. CHLORDIAZEPOXIDE DRAGEE 25MG [Suspect]
     Active Substance: CHLORDIAZEPOXIDE
     Dosage: AS NECESSARY

REACTIONS (1)
  - Polyneuropathy [Unknown]

NARRATIVE: CASE EVENT DATE: 201312
